FAERS Safety Report 21108995 (Version 1)
Quarter: 2022Q3

REPORT INFORMATION
  Report Type: Spontaneous
  Country: US (occurrence: US)
  Receive Date: 20220721
  Receipt Date: 20220721
  Transmission Date: 20221027
  Serious: No
  Sender: FDA-Public Use
  Company Number: US-ELI_LILLY_AND_COMPANY-US202207007824

PATIENT
  Age: 55 Year
  Sex: Female

DRUGS (2)
  1. BAQSIMI [Suspect]
     Active Substance: GLUCAGON
     Indication: Blood glucose decreased
     Dosage: 3 MG, UNKNOWN
     Route: 065
     Dates: start: 20220717
  2. NOVOLOG [Concomitant]
     Active Substance: INSULIN ASPART
     Indication: Type 1 diabetes mellitus

REACTIONS (5)
  - Mass [Recovering/Resolving]
  - Dizziness [Recovering/Resolving]
  - Headache [Recovering/Resolving]
  - Drug hypersensitivity [Unknown]
  - Expired product administered [Unknown]

NARRATIVE: CASE EVENT DATE: 20220717
